FAERS Safety Report 4498778-4 (Version None)
Quarter: 2004Q3

REPORT INFORMATION
  Report Type: 
  Country: None (occurrence: None)
  Receive Date: 20040927
  Receipt Date: 20040616
  Transmission Date: 20050211
  Serious: No
  Sender: FDA-Public Use
  Company Number: USA040670349

PATIENT
  Sex: Male

DRUGS (1)
  1. STRATTERA [Suspect]
     Dosage: 60 MG/1 IN THE MORNING
     Dates: start: 20040602

REACTIONS (4)
  - CHEST DISCOMFORT [None]
  - HEADACHE [None]
  - INSOMNIA [None]
  - THROAT TIGHTNESS [None]
